FAERS Safety Report 16354615 (Version 1)
Quarter: 2019Q2

REPORT INFORMATION
  Report Type: Spontaneous
  Country: US (occurrence: US)
  Receive Date: 20190524
  Receipt Date: 20190524
  Transmission Date: 20190711
  Serious: Yes (Other)
  Sender: FDA-Public Use
  Company Number: US-GLAXOSMITHKLINE-US2019092183

PATIENT
  Sex: Female

DRUGS (5)
  1. ATIVAN [Suspect]
     Active Substance: LORAZEPAM
     Indication: STRESS
     Dosage: UNK
  2. BREO ELLIPTA [Suspect]
     Active Substance: FLUTICASONE FUROATE\VILANTEROL TRIFENATATE
     Indication: PRODUCT USED FOR UNKNOWN INDICATION
     Dosage: 1 PUFF(S), QD
     Route: 055
  3. ADVAIR DISKUS [Suspect]
     Active Substance: FLUTICASONE PROPIONATE\SALMETEROL XINAFOATE
     Indication: PRODUCT USED FOR UNKNOWN INDICATION
     Dosage: UNK
  4. VENTOLIN HFA [Suspect]
     Active Substance: ALBUTEROL SULFATE
     Indication: PRODUCT USED FOR UNKNOWN INDICATION
     Dosage: 1-2 PUFFS EVERY 4-6HOURS AS NEEDED, PRN
     Dates: start: 2004
  5. XANAX [Suspect]
     Active Substance: ALPRAZOLAM
     Indication: PRODUCT USED FOR UNKNOWN INDICATION
     Dosage: 1/2 TABLET

REACTIONS (24)
  - Nausea [Unknown]
  - Respiratory tract congestion [Unknown]
  - Stomatitis [Unknown]
  - Swelling [Unknown]
  - Feeling abnormal [Unknown]
  - Paraesthesia [Unknown]
  - Dyspnoea [Unknown]
  - Middle insomnia [Unknown]
  - Tremor [Unknown]
  - Chest discomfort [Unknown]
  - Tinnitus [Unknown]
  - Dizziness [Unknown]
  - Multiple allergies [Unknown]
  - Head discomfort [Unknown]
  - Cough [Unknown]
  - Insomnia [Unknown]
  - Blood pressure increased [Unknown]
  - Anxiety [Unknown]
  - Feeling hot [Unknown]
  - Feeling drunk [Unknown]
  - Neck pain [Unknown]
  - Clumsiness [Unknown]
  - Dysphonia [Unknown]
  - Headache [Unknown]

NARRATIVE: CASE EVENT DATE: 2015
